FAERS Safety Report 25100675 (Version 2)
Quarter: 2025Q2

REPORT INFORMATION
  Report Type: Spontaneous
  Country: US (occurrence: US)
  Receive Date: 20250320
  Receipt Date: 20250407
  Transmission Date: 20250716
  Serious: Yes (Hospitalization, Other)
  Sender: SANOFI AVENTIS
  Company Number: US-SA-2025SA078766

PATIENT
  Age: 79 Year
  Sex: Female
  Weight: 70.91 kg

DRUGS (3)
  1. DUPIXENT [Suspect]
     Active Substance: DUPILUMAB
     Indication: Dermatitis atopic
     Dosage: 300 MG, QOW
     Route: 058
  2. DUPIXENT [Suspect]
     Active Substance: DUPILUMAB
     Indication: Dermatitis
  3. LOSARTAN POTASSIUM [Concomitant]
     Active Substance: LOSARTAN POTASSIUM

REACTIONS (13)
  - Cardiac failure [Unknown]
  - Bronchitis [Recovering/Resolving]
  - Nausea [Unknown]
  - Skin haemorrhage [Unknown]
  - Scratch [Unknown]
  - Vision blurred [Unknown]
  - Pruritus [Unknown]
  - Rash pruritic [Unknown]
  - Arthralgia [Unknown]
  - Oral herpes [Unknown]
  - Herpes simplex [Unknown]
  - Therapeutic response shortened [Unknown]
  - Product use in unapproved indication [Unknown]

NARRATIVE: CASE EVENT DATE: 20250101
